FAERS Safety Report 10997542 (Version 1)
Quarter: 2015Q2

REPORT INFORMATION
  Report Type: Spontaneous
  Country: US (occurrence: US)
  Receive Date: 20150408
  Receipt Date: 20150408
  Transmission Date: 20150821
  Serious: No
  Sender: FDA-Public Use
  Company Number: US-BANPHARM-20142841

PATIENT
  Age: 82 Year
  Sex: Female
  Weight: 61.24 kg

DRUGS (7)
  1. SLEEPING PILL [Concomitant]
  2. MAGNESIUM [Concomitant]
     Active Substance: MAGNESIUM
  3. ALEVE [Suspect]
     Active Substance: NAPROXEN SODIUM
     Indication: PAIN
     Dosage: 1 DF, PRN,
     Route: 048
     Dates: start: 201406
  4. FISH OIL CAPSULES [Concomitant]
  5. TUMS [Concomitant]
     Active Substance: CALCIUM CARBONATE
  6. VITAMIN D3 [Concomitant]
     Active Substance: CHOLECALCIFEROL
  7. BAYER LOW DOSE [Suspect]
     Active Substance: ASPIRIN

REACTIONS (2)
  - Wrong technique in drug usage process [Unknown]
  - Oropharyngeal pain [Recovered/Resolved]

NARRATIVE: CASE EVENT DATE: 20140629
